FAERS Safety Report 4983684-9 (Version None)
Quarter: 2006Q2

REPORT INFORMATION
  Report Type: 
  Country: None (occurrence: None)
  Receive Date: 20060425
  Receipt Date: 20060425
  Transmission Date: 20061013
  Serious: Yes (Hospitalization)
  Sender: FDA-Public Use
  Company Number: None

PATIENT
  Sex: Male

DRUGS (8)
  1. AMIODARONE HYDROCHLORIDE [Suspect]
     Indication: ATRIAL FIBRILLATION
     Dosage: 200 MG DAILY
  2. AMIODARONE HYDROCHLORIDE [Suspect]
     Indication: HYPERTROPHIC CARDIOMYOPATHY
     Dosage: 200 MG DAILY
  3. METOPROLOL TARTRATE [Suspect]
     Indication: ATRIAL FIBRILLATION
     Dosage: 100 MG BID
  4. VERAPAMIL [Concomitant]
  5. WARFARIN SODIUM [Concomitant]
  6. GEMFIBROZIL [Concomitant]
  7. OMEPRAZOLE [Concomitant]
  8. IBUPROFEN [Concomitant]

REACTIONS (3)
  - BRADYCARDIA [None]
  - DIZZINESS [None]
  - DYSPNOEA EXERTIONAL [None]
